FAERS Safety Report 6599023-6 (Version None)
Quarter: 2010Q1

REPORT INFORMATION
  Report Type: 
  Country: None (occurrence: None)
  Receive Date: 20100224
  Receipt Date: 20090630
  Transmission Date: 20100710
  Serious: No
  Sender: FDA-Public Use
  Company Number: US-BRISTOL-MYERS SQUIBB COMPANY-14684641

PATIENT
  Age: 79 Year
  Sex: Male

DRUGS (6)
  1. METFORMIN HCL [Suspect]
     Indication: DIABETES MELLITUS
     Dosage: STARTED - 06-07/2008
     Route: 048
     Dates: start: 20080601, end: 20080101
  2. GEMFIBROZIL [Concomitant]
  3. GLIPIZIDE [Concomitant]
  4. ATENOLOL [Concomitant]
  5. ASPIRIN [Concomitant]
  6. WARFARIN SODIUM [Concomitant]

REACTIONS (1)
  - RENAL DISORDER [None]
